FAERS Safety Report 19415719 (Version 1)
Quarter: 2021Q2

REPORT INFORMATION
  Report Type: Spontaneous
  Country: US (occurrence: US)
  Receive Date: 20210615
  Receipt Date: 20210615
  Transmission Date: 20210717
  Serious: No
  Sender: FDA-Public Use
  Company Number: US-ALLERGAN-2033703US

PATIENT
  Sex: Female

DRUGS (4)
  1. KYBELLA [Suspect]
     Active Substance: DEOXYCHOLIC ACID
     Dosage: VOLUME USED: 4.4 CC
     Route: 058
     Dates: start: 20191227, end: 20191227
  2. KYBELLA [Suspect]
     Active Substance: DEOXYCHOLIC ACID
     Dosage: VOLUME USED: 5CC
     Route: 058
     Dates: start: 20200228, end: 20200228
  3. KYBELLA [Suspect]
     Active Substance: DEOXYCHOLIC ACID
     Dosage: VOLUME USED: 4.0 CC
     Route: 058
     Dates: start: 20200121, end: 20200121
  4. KYBELLA [Suspect]
     Active Substance: DEOXYCHOLIC ACID
     Indication: PRODUCT USED FOR UNKNOWN INDICATION
     Dosage: VOLUME USED: 5 CC
     Route: 058
     Dates: start: 20200828, end: 20200828

REACTIONS (1)
  - Drug ineffective [Unknown]
